FAERS Safety Report 8892170 (Version 1)
Quarter: 2012Q4

REPORT INFORMATION
  Report Type: 
  Country: US (occurrence: US)
  Receive Date: 20121107
  Receipt Date: 20121107
  Transmission Date: 20130627
  Serious: No
  Sender: FDA-Public Use
  Company Number: US-AMGEN-USASP2011057718

PATIENT
  Age: 48 Year
  Sex: Male

DRUGS (2)
  1. ENBREL [Suspect]
     Indication: RHEUMATOID ARTHRITIS
     Dosage: 50 mg, qwk
     Dates: start: 20101129, end: 201109
  2. PREDNISONE [Concomitant]

REACTIONS (2)
  - Therapeutic response decreased [Recovered/Resolved]
  - Rheumatoid arthritis [Recovered/Resolved]
